FAERS Safety Report 5132178-9 (Version None)
Quarter: 2006Q4

REPORT INFORMATION
  Report Type: 
  Country: None (occurrence: None)
  Receive Date: 20061017
  Receipt Date: 20061003
  Transmission Date: 20070319
  Serious: Yes (Other)
  Sender: FDA-Public Use
  Company Number: 230969

PATIENT
  Sex: 0

DRUGS (1)
  1. HERCEPTIN [Suspect]
     Indication: BREAST CANCER

REACTIONS (1)
  - DILATATION ATRIAL [None]
